FAERS Safety Report 4847936-5 (Version None)
Quarter: 2005Q4

REPORT INFORMATION
  Report Type: 
  Country: None (occurrence: None)
  Receive Date: 20051207
  Receipt Date: 20051207
  Transmission Date: 20060501
  Serious: Yes (Hospitalization)
  Sender: FDA-Public Use
  Company Number: None

PATIENT
  Age: 46 Year
  Sex: Male
  Weight: 106.5953 kg

DRUGS (3)
  1. VYTORIN [Suspect]
     Indication: BLOOD CHOLESTEROL INCREASED
     Dosage: 1   QD   PO
     Route: 048
     Dates: start: 20041218, end: 20050816
  2. VYTORIN [Suspect]
     Indication: BLOOD TRIGLYCERIDES INCREASED
     Dosage: 1   QD   PO
     Route: 048
     Dates: start: 20041218, end: 20050816
  3. VYTORIN [Suspect]
     Dosage: 1   QD   PO
     Route: 048
     Dates: start: 20050816, end: 20051116

REACTIONS (8)
  - ABASIA [None]
  - BLOOD CREATINE PHOSPHOKINASE INCREASED [None]
  - DIFFICULTY IN WALKING [None]
  - OEDEMA PERIPHERAL [None]
  - PAIN [None]
  - SKIN NODULE [None]
  - SWELLING [None]
  - TENDERNESS [None]
